FAERS Safety Report 15099531 (Version 1)
Quarter: 2018Q3

REPORT INFORMATION
  Report Type: Spontaneous
  Country: FR (occurrence: FR)
  Receive Date: 20180702
  Receipt Date: 20180702
  Transmission Date: 20181010
  Serious: Yes (Hospitalization, Other)
  Sender: FDA-Public Use
  Company Number: FR-GILEAD-2018-0347563

PATIENT
  Age: 0 Year
  Sex: Male
  Weight: 3.03 kg

DRUGS (6)
  1. RED BLOOD CELLS [Concomitant]
     Active Substance: HUMAN RED BLOOD CELL
  2. NORVIR [Concomitant]
     Active Substance: RITONAVIR
     Indication: HIV INFECTION
     Dosage: UNK
     Route: 064
     Dates: start: 20171219, end: 20171228
  3. TRUVADA [Suspect]
     Active Substance: EMTRICITABINE\TENOFOVIR DISOPROXIL FUMARATE
     Indication: HIV INFECTION
     Dosage: 1 DF, QD
     Route: 064
     Dates: start: 20171219, end: 20171228
  4. PREZISTA [Concomitant]
     Active Substance: DARUNAVIR ETHANOLATE
     Indication: HIV INFECTION
     Dosage: UNK
     Route: 064
     Dates: start: 20171219, end: 20171228
  5. EVIPLERA [Suspect]
     Active Substance: EMTRICITABINE\RILPIVIRINE\TENOFOVIR DISOPROXIL FUMARATE
     Indication: HIV INFECTION
     Dosage: 1 DF, QD
     Route: 064
     Dates: start: 20171229, end: 20180215
  6. TARDYFERON B9                      /00023601/ [Concomitant]
     Active Substance: FERROUS SULFATE\FOLIC ACID
     Indication: DEFICIENCY ANAEMIA

REACTIONS (3)
  - Premature baby [Unknown]
  - Foetal exposure during pregnancy [Recovered/Resolved]
  - Respiratory distress [Recovered/Resolved]

NARRATIVE: CASE EVENT DATE: 20171219
